FAERS Safety Report 8359461-8 (Version None)
Quarter: 2012Q1

REPORT INFORMATION
  Report Type: 
  Country: None (occurrence: None)
  Receive Date: 20120315
  Receipt Date: 20110209
  Transmission Date: 20120608
  Serious: Yes (Other)
  Sender: FDA-Public Use
  Company Number: PHHY2011US09921

PATIENT
  Age: 27 Year
  Sex: Female
  Weight: 45.3143 kg

DRUGS (1)
  1. GILENYA [Suspect]
     Indication: RELAPSING-REMITTING MULTIPLE SCLEROSIS
     Dosage: 0.5 MG, QD, ORAL
     Route: 048
     Dates: start: 20110125, end: 20110203

REACTIONS (8)
  - INFECTION [None]
  - PYREXIA [None]
  - DIZZINESS [None]
  - FATIGUE [None]
  - PAIN [None]
  - ASTHENIA [None]
  - DYSPNOEA [None]
  - FEELING ABNORMAL [None]
